FAERS Safety Report 9463202 (Version 1)
Quarter: 2013Q3

REPORT INFORMATION
  Report Type: Spontaneous
  Country: US (occurrence: US)
  Receive Date: 20130818
  Receipt Date: 20130818
  Transmission Date: 20140515
  Serious: Yes (Other)
  Sender: FDA-Public Use
  Company Number: PHHY2013US086328

PATIENT
  Age: 77 Year
  Sex: Male

DRUGS (1)
  1. TICLOPIDINE [Suspect]
     Indication: ANTIPLATELET THERAPY

REACTIONS (5)
  - Thrombotic microangiopathy [Unknown]
  - Thrombocytopenia [Unknown]
  - Red blood cell schistocytes present [Unknown]
  - Blood lactate dehydrogenase increased [Unknown]
  - Renal impairment [Unknown]
